FAERS Safety Report 9804907 (Version 2)
Quarter: 2014Q2

REPORT INFORMATION
  Report Type: Spontaneous
  Country: US (occurrence: US)
  Receive Date: 20140108
  Receipt Date: 20140414
  Transmission Date: 20141212
  Serious: No
  Sender: FDA-Public Use
  Company Number: US-009507513-1401USA002871

PATIENT
  Sex: Female
  Weight: 57.6 kg

DRUGS (5)
  1. OXYTROL FOR WOMEN [Suspect]
     Indication: HYPERTONIC BLADDER
     Dosage: UNK, UNKNOWN
     Route: 062
  2. INDERAL [Concomitant]
     Indication: MIGRAINE
     Dosage: UNK, UNKNOWN
  3. VESICARE [Concomitant]
     Indication: HYPERTONIC BLADDER
     Dosage: UNK, UNKNOWN
  4. VITAMINS (UNSPECIFIED) [Concomitant]
     Indication: PRODUCT USED FOR UNKNOWN INDICATION
     Dosage: UNK, UNKNOWN
  5. CYANOCOBALAMIN [Concomitant]
     Indication: PRODUCT USED FOR UNKNOWN INDICATION
     Dosage: UNK, UNKNOWN

REACTIONS (3)
  - Abdominal discomfort [Not Recovered/Not Resolved]
  - Off label use [Unknown]
  - Drug ineffective [Unknown]
